FAERS Safety Report 9920333 (Version 2)
Quarter: 2014Q1

REPORT INFORMATION
  Report Type: Spontaneous
  Country: US (occurrence: US)
  Receive Date: 20140224
  Receipt Date: 20140224
  Transmission Date: 20141002
  Serious: Yes (Hospitalization, Other)
  Sender: FDA-Public Use
  Company Number: US-GE HEALTHCARE MEDICAL DIAGNOSTICS-OSCN-PR-1007S-0197

PATIENT
  Sex: Male

DRUGS (5)
  1. OMNISCAN [Suspect]
     Indication: OSTEOMYELITIS
     Dates: start: 20020528, end: 20020528
  2. MAGNEVIST [Suspect]
     Indication: PRODUCT USED FOR UNKNOWN INDICATION
     Dates: start: 20060208, end: 20060208
  3. MULTIHANCE [Suspect]
     Indication: OSTEOMYELITIS
     Dates: start: 20051212, end: 20051212
  4. OPTIMARK [Suspect]
     Indication: OSTEOMYELITIS
     Dates: start: 20060208, end: 20060208
  5. OMNI 300 [Concomitant]
     Dates: start: 20020827, end: 20020827

REACTIONS (1)
  - Nephrogenic systemic fibrosis [Not Recovered/Not Resolved]
